FAERS Safety Report 6970668-4 (Version None)
Quarter: 2010Q3

REPORT INFORMATION
  Report Type: 
  Country: None (occurrence: None)
  Receive Date: 20100908
  Receipt Date: 20100827
  Transmission Date: 20110219
  Serious: Yes (Other)
  Sender: FDA-Public Use
  Company Number: US-PFIZER INC-2010108591

PATIENT
  Sex: Female
  Weight: 56.236 kg

DRUGS (2)
  1. ZOLOFT [Suspect]
     Indication: ANXIETY
     Dosage: UNK, DAILY
     Route: 048
  2. ZOLOFT [Suspect]
     Indication: DEPRESSION

REACTIONS (3)
  - ANXIETY [None]
  - CONSTIPATION [None]
  - DEPRESSION [None]
